FAERS Safety Report 4641525-3 (Version None)
Quarter: 2005Q2

REPORT INFORMATION
  Report Type: 
  Country: None (occurrence: None)
  Receive Date: 20050421
  Receipt Date: 20050208
  Transmission Date: 20051028
  Serious: Yes (Hospitalization)
  Sender: FDA-Public Use
  Company Number: JP-ROCHE-396174

PATIENT
  Age: 6 Year
  Sex: Male

DRUGS (7)
  1. TAMIFLU [Suspect]
     Route: 048
     Dates: start: 20050201, end: 20050203
  2. TAMIFLU [Suspect]
     Route: 048
     Dates: start: 20050131, end: 20050131
  3. TAMIFLU [Suspect]
     Route: 048
     Dates: start: 20050204, end: 20050204
  4. ANYRUME [Concomitant]
     Indication: DRUG USE FOR UNKNOWN INDICATION
     Route: 048
     Dates: start: 20050131, end: 20050204
  5. THEO-DUR [Concomitant]
     Indication: DRUG USE FOR UNKNOWN INDICATION
     Route: 048
     Dates: start: 20050131, end: 20050204
  6. HOKUNALIN [Concomitant]
     Indication: DRUG USE FOR UNKNOWN INDICATION
     Route: 048
     Dates: start: 20050131, end: 20050204
  7. MUCOSAL [Concomitant]
     Indication: DRUG USE FOR UNKNOWN INDICATION
     Route: 048
     Dates: start: 20050131, end: 20050204

REACTIONS (1)
  - ERYTHEMA MULTIFORME [None]
